FAERS Safety Report 8041358-4 (Version None)
Quarter: 2012Q1

REPORT INFORMATION
  Report Type: 
  Country: None (occurrence: None)
  Receive Date: 20120112
  Receipt Date: 20120109
  Transmission Date: 20120608
  Serious: Yes (Hospitalization, Other)
  Sender: FDA-Public Use
  Company Number: US-PFIZER INC-2010006377

PATIENT
  Sex: Male

DRUGS (5)
  1. NEXIUM [Concomitant]
     Dosage: UNK
     Dates: start: 20080118
  2. ROBINUL FORTE [Concomitant]
     Dosage: UNK
     Dates: start: 20070924
  3. LOTREL [Concomitant]
     Dosage: UNK
     Dates: start: 20070123
  4. CHANTIX [Suspect]
     Indication: SMOKING CESSATION THERAPY
     Dosage: VARIED-INCREASING
     Dates: start: 20080101, end: 20080201
  5. CYMBALTA [Concomitant]
     Dosage: UNK
     Dates: start: 20070123

REACTIONS (3)
  - DEPRESSION [None]
  - SUICIDE ATTEMPT [None]
  - INTENTIONAL OVERDOSE [None]
